FAERS Safety Report 10030769 (Version 2)
Quarter: 2014Q1

REPORT INFORMATION
  Report Type: Spontaneous
  Country: US (occurrence: US)
  Receive Date: 20140323
  Receipt Date: 20140323
  Transmission Date: 20141002
  Serious: No
  Sender: FDA-Public Use
  Company Number: US-ALLERGAN-1401818US

PATIENT
  Sex: Female
  Weight: 61.22 kg

DRUGS (4)
  1. LATISSE 0.03% [Suspect]
     Indication: GROWTH OF EYELASHES
     Dosage: UNK
     Route: 061
     Dates: start: 20131212, end: 201401
  2. CALCITRIOL [Concomitant]
  3. LISINOPRIL [Concomitant]
     Dosage: 10 MG, UNK
  4. CELLCEPT [Concomitant]
     Dosage: 50 UNK, UNK

REACTIONS (2)
  - Eye irritation [Recovered/Resolved]
  - Eye pain [Recovered/Resolved]
